FAERS Safety Report 18821621 (Version 1)
Quarter: 2021Q1

REPORT INFORMATION
  Report Type: Spontaneous
  Country: PT (occurrence: PT)
  Receive Date: 20210202
  Receipt Date: 20210202
  Transmission Date: 20210419
  Serious: Yes (Hospitalization)
  Sender: FDA-Public Use
  Company Number: PT-MYLANLABS-2021M1006423

PATIENT
  Age: 53 Year
  Sex: Female

DRUGS (3)
  1. MEXAZOLAM [Suspect]
     Active Substance: MEXAZOLAM
     Indication: MAJOR DEPRESSION
     Dosage: UNK, TID
  2. FLUOXETINE [Suspect]
     Active Substance: FLUOXETINE HYDROCHLORIDE
     Indication: MAJOR DEPRESSION
     Dosage: ONE CAPSULE AT BREAKFAST
  3. RISPERIDONE. [Suspect]
     Active Substance: RISPERIDONE
     Indication: MAJOR DEPRESSION
     Dosage: HALF TABLET AT BEDTIME

REACTIONS (1)
  - Product dose omission issue [Unknown]
